FAERS Safety Report 19786826 (Version 2)
Quarter: 2021Q4

REPORT INFORMATION
  Report Type: Spontaneous
  Country: US (occurrence: US)
  Receive Date: 20210903
  Receipt Date: 20211021
  Transmission Date: 20220303
  Serious: Yes (Hospitalization, Other)
  Sender: FDA-Public Use
  Company Number: US-MERCK-1012USA01903

PATIENT
  Sex: Female
  Weight: 81.65 kg

DRUGS (24)
  1. FOSAMAX [Suspect]
     Active Substance: ALENDRONATE SODIUM
     Indication: Osteoporosis
     Dosage: 70 MG, UNK
     Route: 048
     Dates: start: 200112, end: 200812
  2. FOSAMAX [Suspect]
     Active Substance: ALENDRONATE SODIUM
     Indication: Osteoporotic fracture
     Dosage: 70 MILLIGRAM, QW
     Route: 048
     Dates: start: 200806, end: 200904
  3. VITAMINS NOS [Concomitant]
     Active Substance: VITAMINS
     Dosage: PRE-NATAL
     Dates: start: 2008
  4. FOLIC ACID [Concomitant]
     Active Substance: FOLIC ACID
     Dosage: 2 MILLIGRAM, QD
     Dates: start: 200801
  5. POTASSIUM [Concomitant]
     Active Substance: POTASSIUM
     Dosage: 20 MILLIEQUIVALENT, QD
     Dates: start: 200801
  6. OS CAL [CALCIUM CARBONATE] [Concomitant]
     Dosage: 1000 MG, QD
     Dates: start: 200508
  7. VITAMINS NOS [Concomitant]
     Active Substance: VITAMINS
     Dosage: MULTIVITAMIN
     Dates: start: 2005
  8. OMEPRAZOLE [Concomitant]
     Active Substance: OMEPRAZOLE
     Dosage: UNK
     Route: 048
  9. OMEPRAZOLE [Concomitant]
     Active Substance: OMEPRAZOLE
     Dosage: UNK
  10. CORTICOSTEROID NOS [Concomitant]
     Active Substance: CORTICOSTEROID NOS
     Dosage: FOR TX OF RA
  11. ENBREL [Concomitant]
     Active Substance: ETANERCEPT
     Dosage: 1 Q WEEK
  12. PREDNISONE [Concomitant]
     Active Substance: PREDNISONE
     Dosage: 1 QD
  13. CELEBREX [Concomitant]
     Active Substance: CELECOXIB
     Dosage: 2 QD
  14. METHOTREXATE SODIUM [Concomitant]
     Active Substance: METHOTREXATE SODIUM
     Dosage: 15 MILLIGRAM, Q WEEK
  15. TRAMADOL [Concomitant]
     Active Substance: TRAMADOL
     Dosage: 1-2 QD/PRN
  16. ATENOLOL [Concomitant]
     Active Substance: ATENOLOL
     Dosage: 1 QD
  17. PRILOSEC [Concomitant]
     Active Substance: OMEPRAZOLE MAGNESIUM
     Dosage: 2 QD
  18. HYDROCHLOROTHIAZIDE [Concomitant]
     Active Substance: HYDROCHLOROTHIAZIDE
     Dosage: 1 QD
  19. PROZAC [Concomitant]
     Active Substance: FLUOXETINE HYDROCHLORIDE
     Dosage: 1 QD
  20. ASPIRIN [Concomitant]
     Active Substance: ASPIRIN
     Dosage: 1 QD
  21. XALATAN [Concomitant]
     Active Substance: LATANOPROST
     Dosage: 1 QD (DROPS)
  22. ULTRAM ER [Concomitant]
     Active Substance: TRAMADOL HYDROCHLORIDE
     Dosage: UNK
  23. BLACK COHOSH [Concomitant]
     Active Substance: BLACK COHOSH
     Dosage: UNK
  24. TYLENOL ARTHRITIS PAIN [Concomitant]
     Active Substance: ACETAMINOPHEN
     Dosage: TID

REACTIONS (42)
  - Femur fracture [Recovering/Resolving]
  - Optic ischaemic neuropathy [Not Recovered/Not Resolved]
  - Arthropathy [Unknown]
  - Blindness [Not Recovered/Not Resolved]
  - Bone disorder [Unknown]
  - Gastric ulcer [Unknown]
  - Arthropathy [Unknown]
  - Bone disorder [Unknown]
  - Urinary tract infection bacterial [Unknown]
  - Escherichia urinary tract infection [Unknown]
  - Anaemia postoperative [Recovered/Resolved]
  - Hypokalaemia [Recovered/Resolved]
  - Device failure [Unknown]
  - Fall [Unknown]
  - Fracture nonunion [Recovering/Resolving]
  - Low turnover osteopathy [Unknown]
  - Sleep apnoea syndrome [Unknown]
  - Blood glucose increased [Unknown]
  - Adverse drug reaction [Unknown]
  - Melanocytic naevus [Unknown]
  - Cyst [Unknown]
  - Arthralgia [Unknown]
  - Diarrhoea [Unknown]
  - Stress urinary incontinence [Unknown]
  - Depression [Unknown]
  - Skin lesion [Unknown]
  - Oedema peripheral [Unknown]
  - Palpitations [Unknown]
  - Psoriasis [Unknown]
  - Gastrooesophageal reflux disease [Unknown]
  - Gait disturbance [Unknown]
  - Osteoarthritis [Unknown]
  - Intervertebral disc degeneration [Unknown]
  - Spondylolisthesis [Unknown]
  - Urinary tract infection [Unknown]
  - Chest pain [Unknown]
  - Limb deformity [Unknown]
  - Oedema peripheral [Unknown]
  - Groin pain [Unknown]
  - Weight increased [Unknown]
  - Hypoaesthesia [Unknown]
  - Anxiety [Unknown]

NARRATIVE: CASE EVENT DATE: 20020101
